FAERS Safety Report 5755573-3 (Version None)
Quarter: 2008Q2

REPORT INFORMATION
  Report Type: 
  Country: None (occurrence: None)
  Receive Date: 20080602
  Receipt Date: 20080522
  Transmission Date: 20081010
  Serious: Yes (Other)
  Sender: FDA-Public Use
  Company Number: JP-MERCK-0805USA04944

PATIENT
  Age: 54 Year
  Sex: Male

DRUGS (5)
  1. PEPCID RPD [Suspect]
     Route: 048
     Dates: start: 20080331
  2. LOXONIN [Suspect]
     Route: 048
     Dates: start: 20080331
  3. CEREKINON [Suspect]
     Route: 048
     Dates: start: 20080331
  4. ALLOID G [Suspect]
     Route: 065
     Dates: start: 20080331
  5. RHYTHMY [Suspect]
     Route: 048
     Dates: start: 20080331

REACTIONS (1)
  - TOXIC SKIN ERUPTION [None]
